FAERS Safety Report 4680990-2 (Version None)
Quarter: 2005Q2

REPORT INFORMATION
  Report Type: 
  Country: None (occurrence: None)
  Receive Date: 20050603
  Receipt Date: 20040630
  Transmission Date: 20051028
  Serious: Yes (Hospitalization)
  Sender: FDA-Public Use
  Company Number: PHBS2004JP08602

PATIENT
  Age: 62 Year
  Sex: Female

DRUGS (8)
  1. BASEN [Concomitant]
     Indication: DIABETES MELLITUS
     Dosage: 0.6 MG, UNK
     Dates: start: 20040826, end: 20040907
  2. BASEN [Concomitant]
     Dosage: 0.9 MG, UNK
     Dates: start: 20040908
  3. PHENYTOIN [Suspect]
     Indication: PROPHYLAXIS
     Dosage: 200 MG, QD
     Route: 048
     Dates: start: 20030701, end: 20040501
  4. GASTER [Concomitant]
     Dosage: 20 MG
     Dates: start: 20030701
  5. STARSIS #AJ [Suspect]
     Indication: DIABETES MELLITUS
     Dosage: 270 MG, QD
     Route: 048
     Dates: start: 20000401, end: 20030707
  6. STARSIS #AJ [Suspect]
     Dosage: 270 MG, QD
     Route: 048
     Dates: start: 20030801, end: 20031113
  7. STARSIS #AJ [Suspect]
     Dosage: 180 MG, QD
     Route: 048
     Dates: start: 20031114, end: 20040527
  8. STARSIS #AJ [Suspect]
     Dosage: 270 MG, QD
     Route: 048
     Dates: start: 20040528

REACTIONS (5)
  - DIABETES MELLITUS INADEQUATE CONTROL [None]
  - DRUG INTERACTION [None]
  - HYPOGLYCAEMIA [None]
  - MENINGITIS VIRAL [None]
  - TREMOR [None]
